FAERS Safety Report 7710253-X (Version None)
Quarter: 2011Q3

REPORT INFORMATION
  Report Type: 
  Country: None (occurrence: None)
  Receive Date: 20110825
  Receipt Date: 20110816
  Transmission Date: 20111222
  Serious: Yes (Other)
  Sender: FDA-Public Use
  Company Number: JP-ASTRAZENECA-2011SE49235

PATIENT
  Age: 73 Year
  Sex: Female

DRUGS (2)
  1. IRESSA [Suspect]
     Route: 048
  2. IRESSA [Suspect]
     Route: 048
     Dates: start: 20110608, end: 20110726

REACTIONS (1)
  - LIVER DISORDER [None]
